FAERS Safety Report 15516680 (Version 1)
Quarter: 2018Q4

REPORT INFORMATION
  Report Type: Spontaneous
  Country: GB (occurrence: GB)
  Receive Date: 20181017
  Receipt Date: 20181017
  Transmission Date: 20190205
  Serious: Yes (Other)
  Sender: FDA-Public Use
  Company Number: GB-BAYER-2018-191937

PATIENT
  Age: 43 Year
  Sex: Male
  Weight: 95 kg

DRUGS (1)
  1. GADOVIST [Suspect]
     Active Substance: GADOBUTROL
     Dosage: 5 ML, UNK

REACTIONS (1)
  - Presyncope [Recovered/Resolved]

NARRATIVE: CASE EVENT DATE: 20180925
